FAERS Safety Report 5232416-8 (Version None)
Quarter: 2007Q1

REPORT INFORMATION
  Report Type: 
  Country: None (occurrence: None)
  Receive Date: 20070207
  Receipt Date: 20070126
  Transmission Date: 20070707
  Serious: Yes (Other)
  Sender: FDA-Public Use
  Company Number: FR-AVENTIS-200710363FR

PATIENT
  Age: 72 Year
  Sex: Male

DRUGS (4)
  1. BIRODOGYL [Suspect]
     Route: 048
     Dates: start: 20070121, end: 20070123
  2. CORDARONE [Concomitant]
     Route: 048
  3. KARDEGIC                           /00002703/ [Concomitant]
     Route: 048
  4. LIPANTHYL [Concomitant]

REACTIONS (5)
  - COORDINATION ABNORMAL [None]
  - DIARRHOEA [None]
  - FALL [None]
  - VERTIGO [None]
  - VOMITING [None]
